FAERS Safety Report 5394853-0 (Version None)
Quarter: 2007Q3

REPORT INFORMATION
  Report Type: 
  Country: None (occurrence: None)
  Receive Date: 20070720
  Receipt Date: 20070705
  Transmission Date: 20080115
  Serious: Yes (Hospitalization)
  Sender: FDA-Public Use
  Company Number: 2007EU001547

PATIENT
  Age: 15 Year
  Sex: Female

DRUGS (7)
  1. PROGRAF [Suspect]
     Indication: CROHN'S DISEASE
     Dosage: 0.05 %, BID, TOPICAL; 0.05%, UID, TOPICAL
     Route: 061
  2. ORABASE(PECTIN, CARMELLOSE SODIUM, GELATIN) [Suspect]
     Indication: CROHN'S DISEASE
     Dosage: 0.05 %, BID, TOPICAL; 0.05%, UID/QD, TOPICAL
     Route: 061
  3. BUDESONIDE [Concomitant]
  4. AZATHIOPRINE [Concomitant]
  5. RANITIDINE HCL [Concomitant]
  6. AFFEX (FLUOXETINE HYDROCHLORIDE) [Concomitant]
  7. IRON PREPARATIONS [Concomitant]

REACTIONS (2)
  - HERPES ZOSTER [None]
  - OFF LABEL USE [None]
